FAERS Safety Report 23695210 (Version 1)
Quarter: 2024Q2

REPORT INFORMATION
  Report Type: Other
  Country: ES (occurrence: ES)
  Receive Date: 20240402
  Receipt Date: 20240402
  Transmission Date: 20240715
  Serious: Yes (Life-Threatening)
  Sender: FDA-Public Use
  Company Number: ES-ROCHE-3533645

PATIENT
  Age: 34 Year
  Sex: Female

DRUGS (7)
  1. OMALIZUMAB [Suspect]
     Active Substance: OMALIZUMAB
     Indication: Idiopathic angioedema
     Dosage: 300 MG/15 D FOR 6 MONTHS
     Route: 065
  2. HYDROCORTISONE [Suspect]
     Active Substance: HYDROCORTISONE
     Indication: Idiopathic angioedema
     Dosage: 300 MG, Q12H
     Route: 065
     Dates: start: 201503
  3. EPINEPHRINE [Suspect]
     Active Substance: EPINEPHRINE
     Indication: Idiopathic angioedema
     Dosage: UNK
     Route: 065
  4. DEXCHLORPHENIRAMINE [Suspect]
     Active Substance: DEXCHLORPHENIRAMINE
     Indication: Idiopathic angioedema
     Route: 065
     Dates: start: 201503
  5. STANOZOLOL [Suspect]
     Active Substance: STANOZOLOL
     Indication: Idiopathic angioedema
     Route: 065
  6. FLUTICASONE [Concomitant]
     Active Substance: FLUTICASONE
     Indication: Asthma
     Dosage: 50/500 UG EVERY 12 HOURS
     Route: 065
  7. TRANEXAMIC ACID [Concomitant]
     Active Substance: TRANEXAMIC ACID
     Indication: Idiopathic angioedema

REACTIONS (1)
  - Therapy non-responder [Unknown]
